FAERS Safety Report 24449348 (Version 1)
Quarter: 2024Q4

REPORT INFORMATION
  Report Type: Report from Study
  Country: US (occurrence: US)
  Receive Date: 20241017
  Receipt Date: 20241017
  Transmission Date: 20250115
  Serious: Yes (Other)
  Sender: ALEXION PHARMACEUTICALS
  Company Number: US-AstraZeneca-CH-00722920A

PATIENT
  Age: 68 Year

DRUGS (4)
  1. ROFLUMILAST [Suspect]
     Active Substance: ROFLUMILAST
     Dosage: UNK
  2. ROFLUMILAST [Suspect]
     Active Substance: ROFLUMILAST
     Dosage: UNK
  3. ROFLUMILAST [Suspect]
     Active Substance: ROFLUMILAST
     Dosage: UNK
  4. ROFLUMILAST [Suspect]
     Active Substance: ROFLUMILAST
     Dosage: UNK

REACTIONS (1)
  - Cataract [Unknown]
